FAERS Safety Report 4606386-7 (Version None)
Quarter: 2005Q1

REPORT INFORMATION
  Report Type: 
  Country: None (occurrence: None)
  Receive Date: 20050311
  Receipt Date: 20050225
  Transmission Date: 20050727
  Serious: Yes (Hospitalization)
  Sender: FDA-Public Use
  Company Number: JP-MERCK-0503USA00391

PATIENT
  Sex: Female

DRUGS (8)
  1. PEPCID RPD [Suspect]
     Route: 048
  2. [THERAPY UNSPECIFIED] [Concomitant]
     Route: 065
  3. LIPANTIL [Concomitant]
     Route: 065
  4. PURSENNID [Concomitant]
     Route: 065
  5. DEPAS [Concomitant]
     Route: 065
  6. ALFAROL [Concomitant]
     Route: 065
  7. RISEDRONATE SODIUM [Concomitant]
     Route: 065
  8. CORTICOSTEROIDS (UNSPECIFIED) [Concomitant]
     Route: 065

REACTIONS (6)
  - ALANINE AMINOTRANSFERASE INCREASED [None]
  - ASPARTATE AMINOTRANSFERASE INCREASED [None]
  - BLOOD BILIRUBIN INCREASED [None]
  - GAMMA-GLUTAMYLTRANSFERASE INCREASED [None]
  - HEPATIC FUNCTION ABNORMAL [None]
  - URINARY TRACT INFECTION [None]
